FAERS Safety Report 5299380-7 (Version None)
Quarter: 2007Q2

REPORT INFORMATION
  Report Type: 
  Country: None (occurrence: None)
  Receive Date: 20070417
  Receipt Date: 20070405
  Transmission Date: 20071010
  Serious: Yes (Hospitalization, Other)
  Sender: FDA-Public Use
  Company Number: PHBS2006JP19323

PATIENT
  Age: 4 Year
  Sex: Female
  Weight: 18 kg

DRUGS (4)
  1. NEORAL [Suspect]
     Indication: POLYARTERITIS NODOSA
     Dosage: 50 MG/D
     Route: 048
     Dates: start: 20061013, end: 20061127
  2. NEORAL [Suspect]
     Dosage: 90 MG/D
     Route: 048
     Dates: start: 20061128, end: 20061201
  3. PREDONINE [Concomitant]
     Dosage: 24 MG/D
     Route: 048
     Dates: start: 20061013
  4. HERBESSER ^TANABE^ [Concomitant]

REACTIONS (10)
  - ABNORMAL BEHAVIOUR [None]
  - AGITATION [None]
  - ATRIOVENTRICULAR BLOCK SECOND DEGREE [None]
  - BLINDNESS TRANSIENT [None]
  - CONVULSION [None]
  - DEPRESSED LEVEL OF CONSCIOUSNESS [None]
  - ENCEPHALOPATHY [None]
  - HEADACHE [None]
  - HYPERTENSION [None]
  - NUCLEAR MAGNETIC RESONANCE IMAGING ABNORMAL [None]
